FAERS Safety Report 14201736 (Version 2)
Quarter: 2018Q4

REPORT INFORMATION
  Report Type: Spontaneous
  Country: US (occurrence: US)
  Receive Date: 20171117
  Receipt Date: 20181228
  Transmission Date: 20190204
  Serious: Yes (Death, Other)
  Sender: FDA-Public Use
  Company Number: US-ASTELLAS-2017US047653

PATIENT
  Age: 23 Month
  Sex: Female

DRUGS (5)
  1. ATG                                /00575401/ [Concomitant]
     Active Substance: LAPINE T-LYMPHOCYTE IMMUNE GLOBULIN
     Indication: ACUTE MYELOID LEUKAEMIA
     Dosage: 2.5 MG/KG, UNKNOWN FREQ. (3 DOSES)
     Route: 065
  2. MYCOPHENOLATE MOFETIL. [Suspect]
     Active Substance: MYCOPHENOLATE MOFETIL
     Indication: PROPHYLAXIS AGAINST GRAFT VERSUS HOST DISEASE
     Dosage: UNK UNK, UNKNOWN FREQ.
     Route: 065
  3. BUSULFAN. [Concomitant]
     Active Substance: BUSULFAN
     Indication: ACUTE MYELOID LEUKAEMIA
     Dosage: 4 MG/KG, UNKNOWN FREQ. (4 DOSES)
     Route: 042
  4. TACROLIMUS. [Suspect]
     Active Substance: TACROLIMUS
     Indication: PROPHYLAXIS AGAINST GRAFT VERSUS HOST DISEASE
     Dosage: UNK, UNKNOWN FREQ.
     Route: 065
  5. CYCLOPHOSPHAMIDE. [Concomitant]
     Active Substance: CYCLOPHOSPHAMIDE
     Indication: ACUTE MYELOID LEUKAEMIA
     Route: 065

REACTIONS (10)
  - Acute myeloid leukaemia recurrent [Fatal]
  - Febrile neutropenia [Unknown]
  - Human herpesvirus 6 infection [Unknown]
  - Rhinovirus infection [Unknown]
  - Pericardial effusion [Unknown]
  - Transplant failure [Unknown]
  - Venoocclusive liver disease [Unknown]
  - Disease progression [Fatal]
  - Respiratory failure [Unknown]
  - Off label use [Unknown]
